FAERS Safety Report 15732521 (Version 9)
Quarter: 2022Q1

REPORT INFORMATION
  Report Type: Spontaneous
  Country: US (occurrence: US)
  Receive Date: 20181217
  Receipt Date: 20220120
  Transmission Date: 20220423
  Serious: Yes (Hospitalization, Other)
  Sender: FDA-Public Use
  Company Number: US-VIFOR (INTERNATIONAL) INC.-VIT-2018-12259

PATIENT
  Age: 72 Year
  Sex: Male

DRUGS (23)
  1. VELTASSA [Suspect]
     Active Substance: PATIROMER
     Indication: Hyperkalaemia
     Route: 048
     Dates: start: 20160617
  2. VELTASSA [Suspect]
     Active Substance: PATIROMER
  3. VELTASSA [Suspect]
     Active Substance: PATIROMER
     Dosage: DOSE INCREASED
     Dates: start: 20190519
  4. DIOVAN [Concomitant]
     Active Substance: VALSARTAN
  5. ELIQUIS [Concomitant]
     Active Substance: APIXABAN
  6. EPIPEN [Concomitant]
     Active Substance: EPINEPHRINE
  7. IMURAN [Concomitant]
     Active Substance: AZATHIOPRINE
  8. LIPITOR [Concomitant]
     Active Substance: ATORVASTATIN CALCIUM
  9. LOVAZA [Concomitant]
     Active Substance: OMEGA-3-ACID ETHYL ESTERS
  10. METANX [Concomitant]
     Active Substance: LEVOMEFOLATE CALCIUM\METHYLCOBALAMIN\PYRIDOXAL PHOSPHATE ANHYDROUS
  11. NITRO-DUR [Concomitant]
     Active Substance: NITROGLYCERIN
  12. MYFORTIC [Concomitant]
     Active Substance: MYCOPHENOLATE SODIUM
  13. NITROGLYCERIN [Concomitant]
     Active Substance: NITROGLYCERIN
  14. PREDNISONE [Concomitant]
     Active Substance: PREDNISONE
  15. STARLIX [Concomitant]
     Active Substance: NATEGLINIDE
  16. TRADJENTA [Concomitant]
     Active Substance: LINAGLIPTIN
  17. VASOTEC [Concomitant]
     Active Substance: ENALAPRIL MALEATE
  18. ZANTAC [Concomitant]
     Active Substance: RANITIDINE HYDROCHLORIDE
  19. BETAPACE [Concomitant]
     Active Substance: SOTALOL HYDROCHLORIDE
  20. TORSEMIDE [Concomitant]
     Active Substance: TORSEMIDE
  21. KEPPRA [Concomitant]
     Active Substance: LEVETIRACETAM
  22. PYRIDOXINE HYDROCHLORIDE [Concomitant]
     Active Substance: PYRIDOXINE HYDROCHLORIDE
  23. SYNTHROID [Concomitant]
     Active Substance: LEVOTHYROXINE SODIUM
     Indication: Thyroid disorder

REACTIONS (12)
  - Malaise [Unknown]
  - Cerebrovascular accident [Unknown]
  - Seizure [Unknown]
  - Aortic valve replacement [Unknown]
  - Dizziness [Recovered/Resolved]
  - Asthenia [Unknown]
  - Blood potassium increased [Unknown]
  - Blood potassium abnormal [Unknown]
  - Tooth infection [Unknown]
  - Off label use [Unknown]
  - Product taste abnormal [Unknown]
  - Drug ineffective [Unknown]

NARRATIVE: CASE EVENT DATE: 20181101
